FAERS Safety Report 13886370 (Version 1)
Quarter: 2017Q3

REPORT INFORMATION
  Report Type: Other
  Country: CN (occurrence: CN)
  Receive Date: 20170821
  Receipt Date: 20170821
  Transmission Date: 20171127
  Serious: Yes (Other)
  Sender: FDA-Public Use
  Company Number: CN-GEHC-2017CSU002547

PATIENT

DRUGS (2)
  1. GUHONG ZHUSHEYE (ACEGLUTAMIDE\SAFFLOWER) [Suspect]
     Active Substance: ACEGLUTAMIDE\SAFFLOWER
     Indication: PERIPHERAL VASCULAR DISORDER
     Dosage: 20 ML, QD
     Route: 041
     Dates: start: 20170618, end: 20170624
  2. VISIPAQUE [Suspect]
     Active Substance: IODIXANOL
     Indication: ACUTE MYOCARDIAL INFARCTION
     Dosage: 110 ML, SINGLE
     Route: 013
     Dates: start: 20170622, end: 20170622

REACTIONS (1)
  - Dermatitis [Recovered/Resolved]

NARRATIVE: CASE EVENT DATE: 20170624
